FAERS Safety Report 4283545-7 (Version None)
Quarter: 2004Q1

REPORT INFORMATION
  Report Type: 
  Country: None (occurrence: None)
  Receive Date: 20040120
  Receipt Date: 20031015
  Transmission Date: 20041129
  Serious: Yes (Other)
  Sender: FDA-Public Use
  Company Number: US-JNJFOC-20030704908

PATIENT
  Age: 29 Year
  Sex: Female
  Weight: 61.2356 kg

DRUGS (2)
  1. COPPER T MODEL TCU 380A [Suspect]
     Indication: CONTRACEPTION
     Dosage: 1 DOSE(S) INTRAUTERINE
     Route: 015
     Dates: start: 20030326, end: 20030812
  2. PRE NATAL VITAMINS (PRENATAL VITAMINS) [Concomitant]

REACTIONS (1)
  - UTERINE PERFORATION [None]
